FAERS Safety Report 8186676-4 (Version None)
Quarter: 2012Q1

REPORT INFORMATION
  Report Type: 
  Country: None (occurrence: None)
  Receive Date: 20120213
  Receipt Date: 20110202
  Transmission Date: 20120608
  Serious: Yes (Other)
  Sender: FDA-Public Use
  Company Number: E2020-08488-SPO-US

PATIENT
  Age: 87 Year
  Sex: Female

DRUGS (2)
  1. ARICEPT [Suspect]
     Indication: DEMENTIA
     Dosage: 5 MG, 1 IN 1 D, ORAL ; 10 MG, 1 IN 1 D, ORAL
     Route: 048
     Dates: start: 20101101, end: 20101201
  2. ARICEPT [Suspect]
     Indication: DEMENTIA
     Dosage: 5 MG, 1 IN 1 D, ORAL ; 10 MG, 1 IN 1 D, ORAL
     Route: 048
     Dates: start: 20101201

REACTIONS (3)
  - CONVULSION [None]
  - PRESYNCOPE [None]
  - URINARY TRACT INFECTION [None]
